FAERS Safety Report 23808025 (Version 5)
Quarter: 2024Q2

REPORT INFORMATION
  Report Type: Spontaneous
  Country: IT (occurrence: IT)
  Receive Date: 20240502
  Receipt Date: 20240604
  Transmission Date: 20240716
  Serious: Yes (Other)
  Sender: FDA-Public Use
  Company Number: IT-Accord-422041

PATIENT
  Age: 83 Year
  Sex: Male
  Weight: 78 kg

DRUGS (16)
  1. FLUOROURACIL [Suspect]
     Active Substance: FLUOROURACIL
     Indication: Adenocarcinoma of colon
     Dosage: TOTAL OF 12 CYCLES (OF WHICH THE LAST THREE WITH THE ANTI-EGFR ANTIBODY ALONE)
     Dates: start: 201806, end: 201812
  2. OXALIPLATIN [Suspect]
     Active Substance: OXALIPLATIN
     Indication: Adenocarcinoma of colon
     Dosage: DOSES REDUCED BY 20%, TOTAL OF 12 CYCLE (OF WHICH THE LAST THREE WITH THE ANTI-EGFR ANTIBODY ALONE)
     Route: 042
     Dates: start: 201806, end: 201812
  3. LEUCOVORIN [Suspect]
     Active Substance: LEUCOVORIN\LEUCOVORIN CALCIUM
     Indication: Adenocarcinoma of colon
     Dosage: DOSES REDUCED BY 20%. TOTAL OF 12 CYCLES (OF WHICH THE LAST THREE WITH THE ANTI-EGFR ANTIBODY ALONE)
     Route: 042
     Dates: start: 201806, end: 201812
  4. PANITUMUMAB [Suspect]
     Active Substance: PANITUMUMAB
     Indication: Adenocarcinoma of colon
     Dosage: DOSES REDUCED BY 20%, TOTAL OF 12 CYCLE (OF WHICH THE LAST THREE WITH THE ANTI-EGFR ANTIBODY ALONE)
     Route: 042
     Dates: start: 201806, end: 201812
  5. PANITUMUMAB [Suspect]
     Active Substance: PANITUMUMAB
     Indication: Metastases to lymph nodes
     Dosage: DOSES REDUCED BY 20%, TOTAL OF 12 CYCLE (OF WHICH THE LAST THREE WITH THE ANTI-EGFR ANTIBODY ALONE)
     Route: 042
     Dates: start: 201806, end: 201812
  6. PANITUMUMAB [Suspect]
     Active Substance: PANITUMUMAB
     Indication: Metastases to liver
     Dosage: DOSES REDUCED BY 20%, TOTAL OF 12 CYCLE (OF WHICH THE LAST THREE WITH THE ANTI-EGFR ANTIBODY ALONE)
     Route: 042
     Dates: start: 201806, end: 201812
  7. PANITUMUMAB [Suspect]
     Active Substance: PANITUMUMAB
     Indication: Colorectal cancer metastatic
     Dosage: DOSES REDUCED BY 20%, TOTAL OF 12 CYCLE (OF WHICH THE LAST THREE WITH THE ANTI-EGFR ANTIBODY ALONE)
     Route: 042
     Dates: start: 201806, end: 201812
  8. OXALIPLATIN [Suspect]
     Active Substance: OXALIPLATIN
     Indication: Metastases to liver
     Dosage: DOSES REDUCED BY 20% , TOTAL OF 12 CYCLE (OF WHICH THE LAST THREE WITH THE ANTI-EGFR ANTIBODY ALONE)
     Route: 042
     Dates: start: 201806, end: 201812
  9. OXALIPLATIN [Suspect]
     Active Substance: OXALIPLATIN
     Indication: Metastases to lymph nodes
     Dosage: DOSES REDUCED BY 20% , TOTAL OF 12 CYCLE (OF WHICH THE LAST THREE WITH THE ANTI-EGFR ANTIBODY ALONE)
     Route: 042
     Dates: start: 201806, end: 201812
  10. OXALIPLATIN [Suspect]
     Active Substance: OXALIPLATIN
     Indication: Colorectal cancer metastatic
     Dosage: DOSES REDUCED BY 20% , TOTAL OF 12 CYCLE (OF WHICH THE LAST THREE WITH THE ANTI-EGFR ANTIBODY ALONE)
     Route: 042
     Dates: start: 201806, end: 201812
  11. LEUCOVORIN [Suspect]
     Active Substance: LEUCOVORIN\LEUCOVORIN CALCIUM
     Indication: Metastases to lymph nodes
     Dosage: DOSES REDUCED BY 20%. TOTAL OF 12 CYCLES (OF WHICH THE LAST THREE WITH THE ANTI-EGFR ANTIBODY ALONE)
     Route: 042
     Dates: start: 201806, end: 201812
  12. LEUCOVORIN [Suspect]
     Active Substance: LEUCOVORIN\LEUCOVORIN CALCIUM
     Indication: Metastases to liver
     Dosage: DOSES REDUCED BY 20%. TOTAL OF 12 CYCLES (OF WHICH THE LAST THREE WITH THE ANTI-EGFR ANTIBODY ALONE)
     Route: 042
     Dates: start: 201806, end: 201812
  13. FLUOROURACIL [Suspect]
     Active Substance: FLUOROURACIL
     Indication: Metastases to lymph nodes
     Dosage: TOTAL OF 12 CYCLES (OF WHICH THE LAST THREE WITH THE ANTI-EGFR ANTIBODY ALONE)
     Dates: start: 201806, end: 201812
  14. FLUOROURACIL [Suspect]
     Active Substance: FLUOROURACIL
     Indication: Metastases to liver
     Dosage: TOTAL OF 12 CYCLES (OF WHICH THE LAST THREE WITH THE ANTI-EGFR ANTIBODY ALONE)
     Dates: start: 201806, end: 201812
  15. FLUOROURACIL [Suspect]
     Active Substance: FLUOROURACIL
     Indication: Colorectal cancer metastatic
     Dosage: TOTAL OF 12 CYCLES (OF WHICH THE LAST THREE WITH THE ANTI-EGFR ANTIBODY ALONE)
     Dates: start: 201806, end: 201812
  16. LEUCOVORIN [Suspect]
     Active Substance: LEUCOVORIN\LEUCOVORIN CALCIUM
     Indication: Colorectal cancer metastatic
     Dosage: DOSES REDUCED BY 20%. TOTAL OF 12 CYCLES (OF WHICH THE LAST THREE WITH THE ANTI-EGFR ANTIBODY ALONE)
     Dates: start: 201806, end: 201812

REACTIONS (5)
  - Conjunctivitis [Recovered/Resolved]
  - Rash maculo-papular [Recovered/Resolved]
  - Paronychia [Recovered/Resolved]
  - Haematotoxicity [Recovered/Resolved]
  - Photophobia [Recovered/Resolved]

NARRATIVE: CASE EVENT DATE: 20180101
